FAERS Safety Report 4719079-2 (Version None)
Quarter: 2005Q3

REPORT INFORMATION
  Report Type: 
  Country: None (occurrence: None)
  Receive Date: 20050719
  Receipt Date: 20050630
  Transmission Date: 20060218
  Serious: Yes (Hospitalization)
  Sender: FDA-Public Use
  Company Number: EWC030735550

PATIENT
  Age: 74 Year
  Sex: Female
  Weight: 51 kg

DRUGS (7)
  1. EVISTA [Suspect]
     Indication: OSTEOPOROSIS
     Dosage: 60 MG/DAY
     Dates: start: 20020807, end: 20030707
  2. CAPTOPRIL [Concomitant]
  3. NOVOTHYRAL [Concomitant]
  4. PRAXILENE (NAFTIDROFURYL OXALATE) [Concomitant]
  5. BUFLOMEDIL [Concomitant]
  6. CHLORTHALIDONE [Concomitant]
  7. XANAX [Concomitant]

REACTIONS (4)
  - ENDOMETRIAL CANCER [None]
  - METRORRHAGIA [None]
  - UTERINE LEIOMYOMA [None]
  - VAGINAL HAEMORRHAGE [None]
